FAERS Safety Report 23958519 (Version 2)
Quarter: 2024Q2

REPORT INFORMATION
  Report Type: Spontaneous
  Country: US (occurrence: US)
  Receive Date: 20240610
  Receipt Date: 20240621
  Transmission Date: 20240716
  Serious: No
  Sender: FDA-Public Use
  Company Number: US-VERTEX PHARMACEUTICALS-2024-009428

PATIENT
  Age: 18 Year
  Sex: Male

DRUGS (2)
  1. CASGEVY [Suspect]
     Active Substance: EXAGAMGLOGENE AUTOTEMCEL
     Indication: Sickle cell disease
     Dosage: UNKNOWN DOSAGE REGIMEN
     Route: 042
  2. PLERIXAFOR [Concomitant]
     Active Substance: PLERIXAFOR
     Indication: Sickle cell disease
     Dosage: UNKNOWN
     Route: 042
     Dates: start: 2024, end: 2024

REACTIONS (1)
  - Device related thrombosis [Recovering/Resolving]

NARRATIVE: CASE EVENT DATE: 20240529
